FAERS Safety Report 9543187 (Version 1)
Quarter: 2013Q3

REPORT INFORMATION
  Report Type: Spontaneous
  Country: US (occurrence: US)
  Receive Date: 20130923
  Receipt Date: 20130923
  Transmission Date: 20140515
  Serious: No
  Sender: FDA-Public Use
  Company Number: US-PURDUE-USA-2012-0091221

PATIENT
  Sex: Female

DRUGS (2)
  1. DILAUDID TABLET [Suspect]
     Indication: PAIN
     Dosage: 2 MG, Q4H
  2. DILAUDID TABLET [Suspect]
     Dosage: 2 MG, Q6H

REACTIONS (1)
  - Drug ineffective [Unknown]
